FAERS Safety Report 14039137 (Version 3)
Quarter: 2019Q2

REPORT INFORMATION
  Report Type: Report from Study
  Country: VN (occurrence: VN)
  Receive Date: 20171004
  Receipt Date: 20190405
  Transmission Date: 20190711
  Serious: Yes (Death, Hospitalization, Other)
  Sender: FDA-Public Use
  Company Number: VN-ASTELLAS-2017US037352

PATIENT
  Age: 55 Year
  Sex: Male

DRUGS (3)
  1. ERLOTINIB [Suspect]
     Active Substance: ERLOTINIB
     Route: 065
     Dates: start: 20170913
  2. ERLOTINIB [Suspect]
     Active Substance: ERLOTINIB
     Route: 065
     Dates: start: 20181004, end: 20190213
  3. ERLOTINIB [Suspect]
     Active Substance: ERLOTINIB
     Indication: LUNG NEOPLASM MALIGNANT
     Route: 065
     Dates: start: 20170804

REACTIONS (5)
  - Rash [Unknown]
  - Malignant neoplasm progression [Unknown]
  - Conjunctival hyperaemia [Unknown]
  - Death [Fatal]
  - Cachexia [Unknown]

NARRATIVE: CASE EVENT DATE: 2018
